FAERS Safety Report 14952468 (Version 4)
Quarter: 2019Q1

REPORT INFORMATION
  Report Type: Spontaneous
  Country: US (occurrence: US)
  Receive Date: 20180530
  Receipt Date: 20190212
  Transmission Date: 20190417
  Serious: Yes (Other)
  Sender: FDA-Public Use
  Company Number: US-PFIZER INC-2018216277

PATIENT
  Age: 71 Year
  Sex: Female
  Weight: 70 kg

DRUGS (7)
  1. LETROZOLE. [Concomitant]
     Active Substance: LETROZOLE
     Indication: BREAST CANCER METASTATIC
     Dosage: 2.5 MG, 1X/DAY
     Route: 048
     Dates: start: 201711
  2. DIAZEPAM. [Concomitant]
     Active Substance: DIAZEPAM
     Indication: INSOMNIA
     Dosage: 5 MG, AS NEEDED
     Route: 048
  3. VENLAFAXINE [Concomitant]
     Active Substance: VENLAFAXINE HYDROCHLORIDE
     Indication: ANXIETY
     Dosage: 37.5 MG, 1X/DAY
     Route: 048
  4. CARTIA [Concomitant]
     Indication: HYPERTENSION
     Dosage: 180 MG, 1X/DAY
     Route: 048
  5. IBRANCE [Suspect]
     Active Substance: PALBOCICLIB
     Indication: BREAST CANCER METASTATIC
     Dosage: 125 MG, CYCLIC (CAPSULE 1 TIME DAILY FOR 3 WEEKS AND THEN 1 WEEK OFF CYCLE)
     Route: 048
     Dates: start: 20171224, end: 20180618
  6. PRAVASTATIN. [Concomitant]
     Active Substance: PRAVASTATIN
     Indication: BLOOD CHOLESTEROL INCREASED
     Dosage: 20 MG, 1X/DAY
     Route: 048
  7. CARDIA [Concomitant]
     Active Substance: AJMALINE
     Indication: HYPERTENSION
     Dosage: 180 MG, 1X/DAY
     Route: 048

REACTIONS (7)
  - Full blood count abnormal [Unknown]
  - Sinusitis [Recovering/Resolving]
  - Oral mucosal blistering [Unknown]
  - Oral pain [Recovering/Resolving]
  - Neutropenia [Recovering/Resolving]
  - Drug hypersensitivity [Recovering/Resolving]
  - Fatigue [Unknown]

NARRATIVE: CASE EVENT DATE: 2018
